FAERS Safety Report 21962382 (Version 1)
Quarter: 2023Q1

REPORT INFORMATION
  Report Type: Report from Study
  Country: US (occurrence: US)
  Receive Date: 20230207
  Receipt Date: 20230207
  Transmission Date: 20230417
  Serious: No
  Sender: FDA-Public Use
  Company Number: US-ORG100014127-2022000525

PATIENT
  Age: 47 Year
  Sex: Male

DRUGS (21)
  1. LYSODREN [Suspect]
     Active Substance: MITOTANE
     Indication: Adrenal gland cancer
     Dosage: 06 TABLETS TWICE DAILY
     Route: 048
     Dates: start: 20220210
  2. METOPROL TAR TAB 50MG [Concomitant]
     Indication: Product used for unknown indication
  3. Omeprazole Cap 20 mg [Concomitant]
     Indication: Product used for unknown indication
  4. Albuterol AER HFA [Concomitant]
     Indication: Product used for unknown indication
  5. Alprazolam tab 0.5 mg [Concomitant]
     Indication: Product used for unknown indication
  6. Amlodipine tab 5 mg [Concomitant]
     Indication: Product used for unknown indication
  7. Dexamethason tab 2 mg [Concomitant]
     Indication: Product used for unknown indication
  8. Eliquis tab 5 mg [Concomitant]
     Indication: Product used for unknown indication
  9. Hydrocort tab 10 mg [Concomitant]
     Indication: Product used for unknown indication
  10. Ibuprofen tab 800 mg [Concomitant]
     Indication: Product used for unknown indication
  11. Imodium A-D Liq 1mg/7.5 [Concomitant]
     Indication: Product used for unknown indication
  12. Metoprol Suc TAB 25 mg ER [Concomitant]
     Indication: Product used for unknown indication
  13. Ondansetron tab 4 mg [Concomitant]
     Indication: Product used for unknown indication
  14. Oxybutynin tab 5 mg [Concomitant]
     Indication: Product used for unknown indication
  15. Oxycodone Tab 5 mg [Concomitant]
     Indication: Product used for unknown indication
  16. Pepto-bismol  sus 262/15 ml [Concomitant]
     Indication: Product used for unknown indication
  17. Propranolol tab 20 mg [Concomitant]
     Indication: Product used for unknown indication
  18. Quetiapine tab 25 mg [Concomitant]
     Indication: Product used for unknown indication
  19. rosuvastatin tab 10 mg [Concomitant]
     Indication: Product used for unknown indication
  20. SIMVASTATIN [Concomitant]
     Active Substance: SIMVASTATIN
     Indication: Product used for unknown indication
  21. Tramadol HCL tab 50 mg [Concomitant]
     Indication: Product used for unknown indication

REACTIONS (7)
  - Anxiety [Not Recovered/Not Resolved]
  - Lethargy [Not Recovered/Not Resolved]
  - Depression [Not Recovered/Not Resolved]
  - Abdominal pain upper [Not Recovered/Not Resolved]
  - Asthenia [Not Recovered/Not Resolved]
  - Hot flush [Not Recovered/Not Resolved]
  - Diarrhoea [Not Recovered/Not Resolved]
